APPROVED DRUG PRODUCT: FOLIC ACID
Active Ingredient: FOLIC ACID
Strength: 1MG
Dosage Form/Route: TABLET;ORAL
Application: A040582 | Product #001
Applicant: SUN PHARMACEUTICAL INDUSTRIES INC
Approved: Jul 18, 2005 | RLD: No | RS: No | Type: DISCN